FAERS Safety Report 8084780-2 (Version None)
Quarter: 2012Q1

REPORT INFORMATION
  Report Type: 
  Country: None (occurrence: None)
  Receive Date: 20120128
  Receipt Date: 20110324
  Transmission Date: 20120608
  Serious: No
  Sender: FDA-Public Use
  Company Number: US-ABBOTT-11P-163-0714505-00

PATIENT
  Sex: Female
  Weight: 127.12 kg

DRUGS (6)
  1. HUMIRA [Suspect]
     Indication: RHEUMATOID ARTHRITIS
  2. FLEXERIL [Concomitant]
     Indication: FIBROMYALGIA
  3. CARDIZEM [Concomitant]
     Indication: ARRHYTHMIA
  4. HUMIRA [Suspect]
     Indication: PSORIATIC ARTHROPATHY
     Dates: start: 20101101
  5. LISINOPRIL AND HYDROCHLOROTHIAZIDE [Concomitant]
     Indication: HYPERTENSION
  6. OMEPRAZOLE [Concomitant]
     Indication: PROPHYLAXIS AGAINST GASTROINTESTINAL ULCER

REACTIONS (4)
  - BURNING SENSATION [None]
  - HERPES ZOSTER [None]
  - PAIN [None]
  - PRURITUS [None]
